FAERS Safety Report 4410558-4 (Version None)
Quarter: 2004Q3

REPORT INFORMATION
  Report Type: 
  Country: None (occurrence: None)
  Receive Date: 20040729
  Receipt Date: 20040623
  Transmission Date: 20050211
  Serious: Yes (Death, Life-Threatening, Other)
  Sender: FDA-Public Use
  Company Number: JP-BRISTOL-MYERS SQUIBB COMPANY-12623971

PATIENT
  Age: 69 Year
  Sex: Female

DRUGS (8)
  1. TAXOL [Suspect]
     Indication: BREAST CANCER RECURRENT
     Route: 041
     Dates: start: 20011115, end: 20011115
  2. HERCEPTIN [Suspect]
     Indication: BREAST CANCER RECURRENT
     Route: 041
     Dates: start: 20011115, end: 20011115
  3. NACL INFUSION [Concomitant]
     Dosage: 100ML TO 500ML ISOTONIC
     Route: 042
     Dates: start: 20011107, end: 20011115
  4. DECADRON [Concomitant]
     Route: 042
     Dates: start: 20011107, end: 20011115
  5. ZANTAC [Concomitant]
     Route: 042
     Dates: start: 20011107, end: 20011115
  6. SEROTONE [Concomitant]
     Route: 042
     Dates: start: 20011107, end: 20011115
  7. RESTAMIN [Concomitant]
     Route: 048
     Dates: start: 20011107, end: 20011115
  8. SODIUM CHLORIDE INJ [Concomitant]
     Route: 041
     Dates: start: 20011107, end: 20011115

REACTIONS (6)
  - ACUTE RESPIRATORY FAILURE [None]
  - BREAST CANCER [None]
  - CONVULSION [None]
  - FALL [None]
  - LEUKOPENIA [None]
  - PLEURAL EFFUSION [None]
